FAERS Safety Report 15543104 (Version 3)
Quarter: 2018Q4

REPORT INFORMATION
  Report Type: Spontaneous
  Country: US (occurrence: US)
  Receive Date: 20181023
  Receipt Date: 20181120
  Transmission Date: 20190205
  Serious: Yes (Other)
  Sender: FDA-Public Use
  Company Number: US-ASTRAZENECA-2018SF37431

PATIENT
  Age: 79 Year
  Sex: Male
  Weight: 54.4 kg

DRUGS (8)
  1. CLOBETASOL [Concomitant]
     Active Substance: CLOBETASOL
     Indication: SKIN CANCER
     Route: 061
  2. FLUOROURACIL. [Concomitant]
     Active Substance: FLUOROURACIL
     Indication: SKIN CANCER
     Route: 061
  3. CALQUENCE [Suspect]
     Active Substance: ACALABRUTINIB
     Indication: MANTLE CELL LYMPHOMA
     Route: 048
     Dates: start: 201809
  4. PLAVIX [Concomitant]
     Active Substance: CLOPIDOGREL BISULFATE
     Indication: ANTICOAGULANT THERAPY
     Dosage: UNKNOWN
     Route: 048
  5. RITUXAN [Suspect]
     Active Substance: RITUXIMAB
     Indication: NEOPLASM MALIGNANT
     Route: 042
  6. CARVEDILOL. [Concomitant]
     Active Substance: CARVEDILOL
     Indication: CARDIAC DISORDER
     Route: 048
  7. TRETINOIN. [Concomitant]
     Active Substance: TRETINOIN
     Indication: SKIN CANCER
     Route: 061
  8. TAMSULOSIN [Concomitant]
     Active Substance: TAMSULOSIN
     Indication: PROSTATOMEGALY
     Dosage: 4.0MG UNKNOWN
     Route: 048

REACTIONS (19)
  - Skin discolouration [Not Recovered/Not Resolved]
  - Frustration tolerance decreased [Not Recovered/Not Resolved]
  - Sleep disorder due to general medical condition, insomnia type [Unknown]
  - Ocular hyperaemia [Unknown]
  - Hypotension [Not Recovered/Not Resolved]
  - Ear pain [Not Recovered/Not Resolved]
  - Scab [Not Recovered/Not Resolved]
  - Facial pain [Not Recovered/Not Resolved]
  - Mantle cell lymphoma recurrent [Unknown]
  - Metastases to skin [Unknown]
  - Emotional distress [Not Recovered/Not Resolved]
  - Deafness [Not Recovered/Not Resolved]
  - Fatigue [Not Recovered/Not Resolved]
  - Neoplasm [Unknown]
  - Loss of consciousness [Unknown]
  - Ulcer [Unknown]
  - Heart rate irregular [Recovering/Resolving]
  - Excessive cerumen production [Unknown]
  - Eczema [Unknown]

NARRATIVE: CASE EVENT DATE: 2018
